FAERS Safety Report 11205987 (Version 1)
Quarter: 2015Q2

REPORT INFORMATION
  Report Type: Spontaneous
  Country: US (occurrence: None)
  Receive Date: 20150618
  Receipt Date: 20150618
  Transmission Date: 20150821
  Serious: Yes (Life-Threatening)
  Sender: FDA-Public Use
  Company Number: None

PATIENT
  Age: 62 Year
  Sex: Female
  Weight: 58.06 kg

DRUGS (3)
  1. APIDRA SOLOSTAR [Concomitant]
     Active Substance: INSULIN GLULISINE
  2. LANTUS SOLOSTAR [Suspect]
     Active Substance: INSULIN GLARGINE
     Indication: TYPE 1 DIABETES MELLITUS
     Dosage: GIVEN INTO/UNDER THE SKIN
     Dates: start: 20150612, end: 20150613
  3. RAMIPRIL. [Concomitant]
     Active Substance: RAMIPRIL

REACTIONS (3)
  - Drug effect increased [None]
  - Hypoglycaemia [None]
  - Blood glucose decreased [None]

NARRATIVE: CASE EVENT DATE: 20150613
